FAERS Safety Report 4281607-1 (Version None)
Quarter: 2004Q1

REPORT INFORMATION
  Report Type: 
  Country: None (occurrence: None)
  Receive Date: 20040128
  Receipt Date: 20040112
  Transmission Date: 20041129
  Serious: Yes (Death)
  Sender: FDA-Public Use
  Company Number: M2003.6115

PATIENT
  Age: 93 Year
  Sex: Female

DRUGS (10)
  1. AMOXICILLIN [Suspect]
     Indication: LOWER RESPIRATORY TRACT INFECTION
     Dosage: ORAL
     Route: 048
  2. ERYTHROMYCIN [Suspect]
     Indication: LOWER RESPIRATORY TRACT INFECTION
     Dosage: ORAL
  3. LEVOFLOXACIN [Suspect]
     Indication: LOWER RESPIRATORY TRACT INFECTION
     Dosage: ORAL
     Dates: start: 20030201
  4. BENDROFLUAZIDE (BENDROFLUAZIDE) [Concomitant]
  5. ATENOLOL [Concomitant]
  6. CALCICHEW D3 (VITAMIN D/CALCIUM, 1BD) [Concomitant]
  7. ASPIRIN [Concomitant]
  8. PARACETAMOL (PARACETAMOL) [Concomitant]
  9. OVESTIN (OESTRIOL) [Concomitant]
  10. HYDROXOCOBALAMIN (HYDROXOCOBALAMIN) [Concomitant]

REACTIONS (1)
  - CLOSTRIDIUM COLITIS [None]
